FAERS Safety Report 20615171 (Version 1)
Quarter: 2022Q1

REPORT INFORMATION
  Report Type: Spontaneous
  Country: US (occurrence: US)
  Receive Date: 20220321
  Receipt Date: 20220321
  Transmission Date: 20220424
  Serious: No
  Sender: FDA-Public Use
  Company Number: US-DECIPHERA PHARMACEUTICALS LLC-2022US000201

PATIENT
  Sex: Male

DRUGS (3)
  1. QINLOCK [Suspect]
     Active Substance: RIPRETINIB
     Indication: Gastrointestinal stromal tumour
     Dosage: 150 MILLIGRAM, QD
     Route: 048
     Dates: start: 20220120
  2. AYVAKIT [Suspect]
     Active Substance: AVAPRITINIB
     Indication: Gastrointestinal stromal tumour
     Dosage: 200 MILLIGRAM, QD
     Route: 048
     Dates: start: 20210817, end: 202201
  3. AYVAKIT [Suspect]
     Active Substance: AVAPRITINIB
     Dosage: 200 MILLIGRAM, QD
     Route: 048

REACTIONS (2)
  - Decreased appetite [Recovered/Resolved]
  - Dry skin [Recovering/Resolving]
